FAERS Safety Report 10205109 (Version 2)
Quarter: 2014Q2

REPORT INFORMATION
  Report Type: Spontaneous
  Country: US (occurrence: US)
  Receive Date: 20140529
  Receipt Date: 20140611
  Transmission Date: 20141212
  Serious: No
  Sender: FDA-Public Use
  Company Number: US-PFIZER INC-2014144018

PATIENT
  Age: 52 Year
  Sex: Female
  Weight: 110.65 kg

DRUGS (3)
  1. ADVIL [Suspect]
     Indication: TOOTHACHE
     Dosage: UNK, AS NEEDED
  2. ADVIL [Suspect]
     Indication: HEADACHE
  3. ADVIL [Suspect]
     Indication: BACK PAIN

REACTIONS (1)
  - Hypertension [Recovered/Resolved]
